FAERS Safety Report 15362935 (Version 1)
Quarter: 2018Q3

REPORT INFORMATION
  Report Type: Spontaneous
  Country: AU (occurrence: AU)
  Receive Date: 20180907
  Receipt Date: 20180907
  Transmission Date: 20181010
  Serious: Yes (Other)
  Sender: FDA-Public Use
  Company Number: AU-JNJFOC-20180843295

PATIENT
  Sex: Female

DRUGS (8)
  1. SUMATRIPTAN SUCCINATE. [Suspect]
     Active Substance: SUMATRIPTAN SUCCINATE
     Indication: PRODUCT USED FOR UNKNOWN INDICATION
     Route: 065
  2. KETAMINE [Suspect]
     Active Substance: KETAMINE
     Indication: PRODUCT USED FOR UNKNOWN INDICATION
     Route: 065
  3. BOTOX [Suspect]
     Active Substance: ONABOTULINUMTOXINA
     Indication: PRODUCT USED FOR UNKNOWN INDICATION
     Route: 065
  4. LIDOCAINE. [Suspect]
     Active Substance: LIDOCAINE
     Indication: PRODUCT USED FOR UNKNOWN INDICATION
     Route: 065
  5. ZOMIG [Suspect]
     Active Substance: ZOLMITRIPTAN
     Indication: PRODUCT USED FOR UNKNOWN INDICATION
     Route: 065
  6. TOPAMAX [Suspect]
     Active Substance: TOPIRAMATE
     Indication: PRODUCT USED FOR UNKNOWN INDICATION
     Route: 048
  7. TRAMADOL HYDROCHLORIDE. [Suspect]
     Active Substance: TRAMADOL HYDROCHLORIDE
     Indication: PRODUCT USED FOR UNKNOWN INDICATION
     Route: 065
  8. MAXALT [Suspect]
     Active Substance: RIZATRIPTAN BENZOATE
     Indication: PRODUCT USED FOR UNKNOWN INDICATION
     Route: 065

REACTIONS (9)
  - Hallucination [Unknown]
  - Stress [Unknown]
  - Nephrolithiasis [Unknown]
  - Drug ineffective [Unknown]
  - Migraine [Unknown]
  - Anaphylactic reaction [Unknown]
  - Renal pain [Unknown]
  - Drug effect decreased [Unknown]
  - Muscle twitching [Unknown]
